FAERS Safety Report 13057472 (Version 1)
Quarter: 2016Q4

REPORT INFORMATION
  Report Type: Spontaneous
  Country: US (occurrence: US)
  Receive Date: 20161223
  Receipt Date: 20161223
  Transmission Date: 20170207
  Serious: No
  Sender: FDA-Public Use
  Company Number: US-ASTRAZENECA-2016SF27010

PATIENT
  Age: 25737 Day
  Sex: Female

DRUGS (7)
  1. PROAIR HFA [Concomitant]
     Active Substance: ALBUTEROL SULFATE
     Indication: INFECTION
     Route: 055
     Dates: start: 20161114
  2. ELIQUIS [Concomitant]
     Active Substance: APIXABAN
     Route: 048
     Dates: start: 20160127
  3. METOPROLOL TARTRATE. [Suspect]
     Active Substance: METOPROLOL TARTRATE
     Indication: BLOOD PRESSURE ABNORMAL
     Route: 048
     Dates: start: 201410
  4. SYMBICORT [Suspect]
     Active Substance: BUDESONIDE\FORMOTEROL FUMARATE DIHYDRATE
     Dosage: 160/4.5 MCG 2 PUFFS TWICE A DAY
     Route: 055
     Dates: start: 20161114
  5. LEVAQUIN [Concomitant]
     Active Substance: LEVOFLOXACIN
     Indication: NASOPHARYNGITIS
     Route: 048
     Dates: start: 20161114
  6. AMIODORONE [Concomitant]
     Active Substance: AMIODARONE
     Indication: BLOOD PRESSURE ABNORMAL
     Route: 048
     Dates: start: 201410
  7. ATROVENT [Concomitant]
     Active Substance: IPRATROPIUM BROMIDE
     Indication: FEELING COLD
     Route: 055
     Dates: start: 20161114

REACTIONS (3)
  - Product quality issue [Not Recovered/Not Resolved]
  - Off label use [Unknown]
  - Nasopharyngitis [Unknown]

NARRATIVE: CASE EVENT DATE: 20161125
